FAERS Safety Report 9504732 (Version 1)
Quarter: 2013Q3

REPORT INFORMATION
  Report Type: Spontaneous
  Country: US (occurrence: US)
  Receive Date: 20130906
  Receipt Date: 20130906
  Transmission Date: 20140515
  Serious: Yes (Other)
  Sender: FDA-Public Use
  Company Number: US-ELI_LILLY_AND_COMPANY-US201309000913

PATIENT
  Sex: Female
  Weight: 63.49 kg

DRUGS (1)
  1. HUMALOG LISPRO [Suspect]
     Route: 058

REACTIONS (3)
  - Blood glucose increased [Recovered/Resolved]
  - Asthenia [Unknown]
  - Fatigue [Unknown]
